FAERS Safety Report 13906430 (Version 1)
Quarter: 2017Q3

REPORT INFORMATION
  Report Type: Spontaneous
  Country: JP (occurrence: JP)
  Receive Date: 20170825
  Receipt Date: 20170825
  Transmission Date: 20171127
  Serious: Yes (Hospitalization)
  Sender: FDA-Public Use
  Company Number: JP-PFIZER INC-2017364903

PATIENT

DRUGS (1)
  1. INLYTA [Suspect]
     Active Substance: AXITINIB
     Dosage: 2 MG, UNK
     Dates: start: 2014

REACTIONS (3)
  - Neoplasm progression [Unknown]
  - Infection [Unknown]
  - Decreased appetite [Unknown]
